FAERS Safety Report 6335737-0 (Version None)
Quarter: 2009Q3

REPORT INFORMATION
  Report Type: 
  Country: None (occurrence: None)
  Receive Date: 20090831
  Receipt Date: 20090821
  Transmission Date: 20100115
  Serious: Yes (Death, Other)
  Sender: FDA-Public Use
  Company Number: US-ELI_LILLY_AND_COMPANY-US200904002579

PATIENT
  Sex: Female
  Weight: 44.444 kg

DRUGS (4)
  1. FORTEO [Suspect]
     Indication: OSTEOPOROSIS
     Dates: start: 20070101
  2. VITAMINS [Concomitant]
  3. VITAMIN D [Concomitant]
  4. HYDROCODONE [Concomitant]

REACTIONS (9)
  - ARTERIOSCLEROSIS [None]
  - ATRIAL FIBRILLATION [None]
  - COUGH [None]
  - DEEP VEIN THROMBOSIS [None]
  - EMPHYSEMA [None]
  - MITRAL VALVE INCOMPETENCE [None]
  - NASOPHARYNGITIS [None]
  - SMALL CELL LUNG CANCER STAGE UNSPECIFIED [None]
  - TRICUSPID VALVE INCOMPETENCE [None]
